FAERS Safety Report 5252838-9 (Version None)
Quarter: 2007Q1

REPORT INFORMATION
  Report Type: 
  Country: None (occurrence: None)
  Receive Date: 20070227
  Receipt Date: 20070214
  Transmission Date: 20070707
  Serious: Yes (Death)
  Sender: FDA-Public Use
  Company Number: GXKR2007GB01710

PATIENT
  Age: 60 Year
  Sex: Male
  Weight: 96.7 kg

DRUGS (7)
  1. PAROXETINE HCL [Suspect]
     Indication: DEPRESSION
     Dosage: UNK, UNK, ORAL
     Route: 048
     Dates: start: 20060906
  2. METFORMIN HCL [Suspect]
     Indication: DIABETES MELLITUS
     Dosage: 2 G, UNK, ORAL
     Route: 048
     Dates: start: 20040402
  3. ASPIRIN [Concomitant]
  4. DIAZEPAM [Concomitant]
  5. PERINDOPRIL ERBUMINE [Concomitant]
  6. SALBUTAMOL (SALBUTAMOL) [Concomitant]
  7. SIMVASTATIN [Concomitant]

REACTIONS (2)
  - COMPLETED SUICIDE [None]
  - OVERDOSE [None]
